FAERS Safety Report 23499940 (Version 1)
Quarter: 2024Q1

REPORT INFORMATION
  Report Type: Spontaneous
  Country: NL (occurrence: NL)
  Receive Date: 20240208
  Receipt Date: 20240208
  Transmission Date: 20240410
  Serious: Yes (Life-Threatening, Hospitalization)
  Sender: FDA-Public Use
  Company Number: None

PATIENT
  Age: 74 Year
  Sex: Male
  Weight: 96 kg

DRUGS (4)
  1. QUETIAPINE [Suspect]
     Active Substance: QUETIAPINE
     Indication: Delirium
     Dosage: 3X 25 MG.  TABLET FO  25MG / BRAND NAME NOT SPECIFIED
     Route: 065
     Dates: start: 20231104, end: 20231107
  2. MAGNESIUM SULFATE [Concomitant]
     Active Substance: MAGNESIUM SULFATE\MAGNESIUM SULFATE HEPTAHYDRATE
     Indication: Arrhythmia
     Dosage: INFUSION FLUID, 100 MG/ML (MILLIGRAMS PER MILLILITER)/BRAND NAME NOT SPECIFIED
     Route: 065
     Dates: start: 20231101, end: 20231107
  3. VORICONAZOLE [Suspect]
     Active Substance: VORICONAZOLE
     Indication: Bronchopulmonary aspergillosis
     Dosage: EVERY 12 HOURS?INFUSION POWDER 200MG / BRAND NAME NOT SPECIFIED
     Route: 065
     Dates: start: 20231031, end: 20231107
  4. AMIODARONE [Suspect]
     Active Substance: AMIODARONE
     Indication: Arrhythmia
     Dosage: CONTINUE,  INJVLST 50MG/ML / BRAND NAME NOT SPECIFIED
     Route: 065
     Dates: start: 20231101, end: 20231107

REACTIONS (3)
  - Cardiac arrest [Recovering/Resolving]
  - Torsade de pointes [Recovering/Resolving]
  - Ventricular extrasystoles [Recovering/Resolving]

NARRATIVE: CASE EVENT DATE: 20231106
